FAERS Safety Report 17650469 (Version 4)
Quarter: 2021Q1

REPORT INFORMATION
  Report Type: Spontaneous
  Country: US (occurrence: US)
  Receive Date: 20200409
  Receipt Date: 20210127
  Transmission Date: 20210419
  Serious: Yes (Other)
  Sender: FDA-Public Use
  Company Number: US-PFIZER INC-2020146063

PATIENT
  Age: 63 Year

DRUGS (1)
  1. EFFEXOR XR [Suspect]
     Active Substance: VENLAFAXINE HYDROCHLORIDE
     Dosage: UNK

REACTIONS (9)
  - Neoplasm malignant [Unknown]
  - Withdrawal syndrome [Unknown]
  - Nausea [Unknown]
  - Rheumatoid arthritis [Unknown]
  - Dizziness [Unknown]
  - Bipolar disorder [Unknown]
  - Asthma [Unknown]
  - Dyspnoea [Unknown]
  - Product prescribing error [Unknown]

NARRATIVE: CASE EVENT DATE: 2019
